FAERS Safety Report 19143856 (Version 1)
Quarter: 2021Q2

REPORT INFORMATION
  Report Type: Spontaneous
  Country: DE (occurrence: DE)
  Receive Date: 20210416
  Receipt Date: 20210416
  Transmission Date: 20210717
  Serious: Yes (Hospitalization, Other)
  Sender: FDA-Public Use
  Company Number: DE-TEVA-2021-DE-1900967

PATIENT
  Age: 53 Year
  Sex: Female

DRUGS (6)
  1. TRAMADOL. [Concomitant]
     Active Substance: TRAMADOL
     Dosage: NEED, JUICE
  2. PANTOPRAZOL [Concomitant]
     Active Substance: PANTOPRAZOLE SODIUM
     Dosage: 40 MILLIGRAM DAILY; 1?0?0?0
  3. EPIRUBICIN [Suspect]
     Active Substance: EPIRUBICIN
     Dosage: 180 MG
     Route: 065
     Dates: start: 20201202, end: 20210114
  4. PREDNISOLON [Concomitant]
     Active Substance: PREDNISOLONE
     Dosage: 10 MILLIGRAM DAILY; 1?0?0?0
  5. LEVOTHYROXINE SODIUM. [Concomitant]
     Active Substance: LEVOTHYROXINE SODIUM
     Dosage: 50 MICROGRAM DAILY; 1?0?0?0
  6. CYCLOPHOSPHAMID [Suspect]
     Active Substance: CYCLOPHOSPHAMIDE
     Dosage: 1200 MG,
     Route: 065
     Dates: start: 20201202, end: 20210114

REACTIONS (6)
  - Pyrexia [Unknown]
  - Muscular weakness [Unknown]
  - Pancytopenia [Unknown]
  - Condition aggravated [Unknown]
  - Alopecia [Unknown]
  - Urosepsis [Unknown]

NARRATIVE: CASE EVENT DATE: 202101
